FAERS Safety Report 21520767 (Version 3)
Quarter: 2024Q2

REPORT INFORMATION
  Report Type: Spontaneous
  Country: US (occurrence: US)
  Receive Date: 20221028
  Receipt Date: 20240614
  Transmission Date: 20240716
  Serious: No
  Sender: FDA-Public Use
  Company Number: US-INCYTE CORPORATION-2022IN010199

PATIENT

DRUGS (2)
  1. JAKAFI [Suspect]
     Active Substance: RUXOLITINIB
     Indication: Polycythaemia vera
     Dosage: 20 MILLIGRAM, BID
     Route: 048
     Dates: start: 20221011
  2. JAKAFI [Suspect]
     Active Substance: RUXOLITINIB
     Dosage: 10 MILLIGRAM, AS  DIRECTED
     Route: 048
     Dates: start: 20221011

REACTIONS (38)
  - Blood sodium abnormal [Unknown]
  - White blood cell count decreased [Unknown]
  - Red cell distribution width increased [Unknown]
  - Mean platelet volume increased [Unknown]
  - Neutrophil percentage decreased [Unknown]
  - Lymphocyte percentage increased [Unknown]
  - Monocyte percentage increased [Unknown]
  - Immature granulocyte percentage increased [Unknown]
  - Blood chloride increased [Unknown]
  - Blood creatinine increased [Unknown]
  - Blood glucose increased [Unknown]
  - Glomerular filtration rate decreased [Unknown]
  - Blood albumin decreased [Unknown]
  - Globulins increased [Unknown]
  - Alpha 2 globulin increased [Unknown]
  - Albumin globulin ratio decreased [Unknown]
  - Neutrophil percentage decreased [Unknown]
  - Myelocyte percentage increased [Unknown]
  - Metamyelocyte percentage increased [Unknown]
  - Nucleated red cells [Unknown]
  - Myelocyte count increased [Unknown]
  - Polychromasia [Unknown]
  - Light chain analysis increased [Unknown]
  - Blood lactate dehydrogenase increased [Unknown]
  - Mean cell volume increased [Unknown]
  - Mean cell haemoglobin increased [Unknown]
  - Protein total decreased [Unknown]
  - Blood iron increased [Unknown]
  - Transferrin saturation increased [Unknown]
  - Iron binding capacity unsaturated decreased [Unknown]
  - Lymphocyte percentage decreased [Unknown]
  - Platelet count increased [Unknown]
  - Product dose omission issue [Unknown]
  - Red blood cell count decreased [Unknown]
  - Haemoglobin decreased [Unknown]
  - Haematocrit decreased [Unknown]
  - Platelet count decreased [Unknown]
  - Neutrophil count decreased [Unknown]

NARRATIVE: CASE EVENT DATE: 20221013
